FAERS Safety Report 8934955 (Version 1)
Quarter: 2012Q4

REPORT INFORMATION
  Report Type: 
  Country: US (occurrence: US)
  Receive Date: 20121129
  Receipt Date: 20121129
  Transmission Date: 20130627
  Serious: Yes (Other)
  Sender: FDA-Public Use
  Company Number: US-BRISTOL-MYERS SQUIBB COMPANY-17145574

PATIENT

DRUGS (2)
  1. ONGLYZA TABS [Suspect]
     Indication: DIABETES MELLITUS
  2. KOMBIGLYZE XR [Suspect]
     Indication: DIABETES MELLITUS

REACTIONS (1)
  - Pancreatitis [Unknown]
